FAERS Safety Report 21597767 (Version 1)
Quarter: 2022Q4

REPORT INFORMATION
  Report Type: Spontaneous
  Country: GB (occurrence: GB)
  Receive Date: 20221115
  Receipt Date: 20221115
  Transmission Date: 20230112
  Serious: Yes (Hospitalization, Other)
  Sender: FDA-Public Use
  Company Number: GB-VELOXIS PHARMACEUTICALS-2019VELGB-000644

PATIENT
  Sex: Male

DRUGS (33)
  1. TACROLIMUS [Suspect]
     Active Substance: TACROLIMUS
     Indication: Antiviral treatment
     Dosage: 2 MILLIGRAM, BID (4 MILLIGRAM QD)
  2. TACROLIMUS [Suspect]
     Active Substance: TACROLIMUS
     Indication: Immunosuppressant drug therapy
     Dosage: 2 MILLIGRAM, Q5D
  3. PREDNISOLONE [Suspect]
     Active Substance: PREDNISOLONE
     Indication: Antiviral treatment
     Dosage: 15 MILLIGRAM DAILY
     Route: 065
  4. PREDNISOLONE [Suspect]
     Active Substance: PREDNISOLONE
     Indication: Immunosuppression
     Dosage: 8 MG DAILY; FOR 2 MONTHS
     Route: 065
  5. PREDNISOLONE [Suspect]
     Active Substance: PREDNISOLONE
     Indication: Immunosuppressant drug therapy
     Dosage: 5 MILLIGRAM DAILY
     Route: 065
  6. GANCICLOVIR [Suspect]
     Active Substance: GANCICLOVIR
     Indication: Cytomegalovirus chorioretinitis
     Dosage: UNK
  7. GANCICLOVIR [Suspect]
     Active Substance: GANCICLOVIR
     Indication: Cytomegalovirus viraemia
     Dosage: 2.5 MILLIGRAM/KILOGRAM, QD
     Route: 042
  8. GANCICLOVIR [Suspect]
     Active Substance: GANCICLOVIR
     Dosage: 450 MICROGRAM, QD
  9. GANCICLOVIR [Suspect]
     Active Substance: GANCICLOVIR
     Dosage: 450 MICROGRAM, QD
     Route: 050
  10. GANCICLOVIR [Suspect]
     Active Substance: GANCICLOVIR
     Dosage: WEEKLY LEFT EYE INTRAVITREAL GCV (2 MG/0.1 ML) Q4W
     Route: 050
  11. GANCICLOVIR [Suspect]
     Active Substance: GANCICLOVIR
     Dosage: 2 MILLIGRAM, 1 WEEK
  12. GANCICLOVIR [Suspect]
     Active Substance: GANCICLOVIR
     Dosage: 7 UNK
     Route: 042
  13. CYCLOSPORINE [Suspect]
     Active Substance: CYCLOSPORINE
     Indication: Immunosuppression
     Dosage: UNK
     Route: 065
  14. CYCLOSPORINE [Suspect]
     Active Substance: CYCLOSPORINE
     Indication: Immunosuppressant drug therapy
  15. AZATHIOPRINE [Suspect]
     Active Substance: AZATHIOPRINE
     Indication: Immunosuppression
     Dosage: UNK
     Route: 065
  16. AZATHIOPRINE [Suspect]
     Active Substance: AZATHIOPRINE
     Indication: Immunosuppressant drug therapy
     Dosage: UNK
     Route: 065
  17. METHYLPREDNISOLONE [Suspect]
     Active Substance: METHYLPREDNISOLONE
     Indication: Immunosuppressant drug therapy
     Dosage: UNK
     Route: 042
  18. FOSCARNET [Suspect]
     Active Substance: FOSCARNET
     Indication: Cytomegalovirus viraemia
     Dosage: INJECTION
     Route: 042
  19. FOSCARNET [Suspect]
     Active Substance: FOSCARNET
     Indication: Cytomegalovirus infection reactivation
     Dosage: 2.4 MG/0.1 ML WAS INITIATED IN THE RIGHT THEN THE LEFT EYE AND REPEATED AT 1-2-WEEK INTERVALS
  20. FOSCARNET [Suspect]
     Active Substance: FOSCARNET
     Indication: Cytomegalovirus chorioretinitis
  21. LAPINE T-LYMPHOCYTE IMMUNE GLOBULIN [Suspect]
     Active Substance: LAPINE T-LYMPHOCYTE IMMUNE GLOBULIN
     Indication: Immunosuppression
     Dosage: 1.5 MILLIGRAM/KILOGRAM, FOR 3 DAYS
     Route: 065
  22. LAPINE T-LYMPHOCYTE IMMUNE GLOBULIN [Suspect]
     Active Substance: LAPINE T-LYMPHOCYTE IMMUNE GLOBULIN
     Indication: Immunosuppressant drug therapy
  23. HUMAN CYTOMEGALOVIRUS IMMUNE GLOBULIN [Concomitant]
     Active Substance: HUMAN CYTOMEGALOVIRUS IMMUNE GLOBULIN
     Indication: Cytomegalovirus chorioretinitis
     Dosage: UNK
     Route: 065
  24. HUMAN CYTOMEGALOVIRUS IMMUNE GLOBULIN [Concomitant]
     Active Substance: HUMAN CYTOMEGALOVIRUS IMMUNE GLOBULIN
     Indication: Cytomegalovirus infection reactivation
     Dosage: WEEKLY
     Route: 065
  25. HUMAN CYTOMEGALOVIRUS IMMUNE GLOBULIN [Concomitant]
     Active Substance: HUMAN CYTOMEGALOVIRUS IMMUNE GLOBULIN
     Indication: Cytomegalovirus viraemia
     Dosage: 2 MG/KG FOR 4 WEEKS
     Route: 065
  26. VALGANCICLOVIR [Suspect]
     Active Substance: VALGANCICLOVIR
     Indication: Cytomegalovirus viraemia
     Dosage: 450 MICROGRAM, QD
  27. VALGANCICLOVIR [Suspect]
     Active Substance: VALGANCICLOVIR
     Indication: Prophylaxis
     Dosage: 450 MICROGRAM, QD
  28. VALGANCICLOVIR [Suspect]
     Active Substance: VALGANCICLOVIR
     Indication: Cytomegalovirus infection reactivation
  29. SIROLIMUS [Concomitant]
     Active Substance: SIROLIMUS
     Indication: Antiviral treatment
     Dosage: UNK
  30. SIROLIMUS [Concomitant]
     Active Substance: SIROLIMUS
     Dosage: 1.5 MILLIGRAM, QD
     Route: 065
  31. LEFLUNOMIDE [Concomitant]
     Active Substance: LEFLUNOMIDE
     Indication: Cytomegalovirus infection reactivation
     Dosage: 15 MONTH, SYSTEMIC; LONG-TERM ANTIVIRAL THERAPY
     Route: 065
  32. LEFLUNOMIDE [Concomitant]
     Active Substance: LEFLUNOMIDE
     Indication: Cytomegalovirus viraemia
  33. CYTOTEC [Concomitant]
     Active Substance: MISOPROSTOL
     Indication: Cytomegalovirus viraemia
     Dosage: UNK, QW

REACTIONS (15)
  - Retinal scar [Recovered/Resolved]
  - Retinal detachment [Recovered/Resolved]
  - Myelosuppression [Unknown]
  - Pleural effusion [Unknown]
  - Renal impairment [Recovered/Resolved]
  - Cytomegalovirus infection reactivation [Recovered/Resolved]
  - Nephropathy toxic [Recovered/Resolved]
  - Pneumonia cytomegaloviral [Recovered/Resolved]
  - Cytomegalovirus chorioretinitis [Recovered/Resolved]
  - Cytomegalovirus viraemia [Recovered/Resolved]
  - Visual impairment [Not Recovered/Not Resolved]
  - Drug resistance [Recovered/Resolved]
  - Off label use [Unknown]
  - Product use issue [Recovered/Resolved]
  - Product use in unapproved indication [Unknown]
